FAERS Safety Report 8773256 (Version 2)
Quarter: 2012Q4

REPORT INFORMATION
  Report Type: 
  Country: US (occurrence: US)
  Receive Date: 20120907
  Receipt Date: 20121011
  Transmission Date: 20130627
  Serious: Yes (Other)
  Sender: FDA-Public Use
  Company Number: US-ROCHE-1108839

PATIENT

DRUGS (3)
  1. AVASTIN [Suspect]
     Indication: METASTATIC RENAL CELL CARCINOMA
     Route: 042
  2. ROFERON-A [Suspect]
     Indication: METASTATIC RENAL CELL CARCINOMA
     Dosage: 9 MU
     Route: 058
  3. TEMSIROLIMUS [Suspect]
     Indication: METASTATIC RENAL CELL CARCINOMA
     Route: 042

REACTIONS (6)
  - Mucosal inflammation [Unknown]
  - Stomatitis [Unknown]
  - Hypophosphataemia [Unknown]
  - Hyperglycaemia [Unknown]
  - Hypercholesterolaemia [Unknown]
  - Neutropenia [Unknown]
